FAERS Safety Report 16393523 (Version 1)
Quarter: 2019Q2

REPORT INFORMATION
  Report Type: Spontaneous
  Country: FR (occurrence: FR)
  Receive Date: 20190605
  Receipt Date: 20190605
  Transmission Date: 20190711
  Serious: Yes (Hospitalization)
  Sender: FDA-Public Use
  Company Number: PHHY2019FR127790

PATIENT
  Age: 23 Year
  Sex: Female
  Weight: 39.1 kg

DRUGS (1)
  1. PARACETAMOL [Suspect]
     Active Substance: ACETAMINOPHEN
     Indication: TOXICITY TO VARIOUS AGENTS
     Dosage: 16 G, UNK
     Route: 048

REACTIONS (4)
  - Prothrombin time shortened [Recovered/Resolved]
  - Blood alkaline phosphatase decreased [Unknown]
  - Transaminases increased [Unknown]
  - Toxicity to various agents [Recovered/Resolved]

NARRATIVE: CASE EVENT DATE: 20190517
